FAERS Safety Report 7790682-9 (Version None)
Quarter: 2011Q3

REPORT INFORMATION
  Report Type: 
  Country: None (occurrence: None)
  Receive Date: 20110930
  Receipt Date: 20110920
  Transmission Date: 20111222
  Serious: Yes (Disabling, Other)
  Sender: FDA-Public Use
  Company Number: BR-US-EMD SERONO, INC.-7085153

PATIENT
  Sex: Female

DRUGS (3)
  1. REBIF [Suspect]
     Indication: RELAPSING-REMITTING MULTIPLE SCLEROSIS
     Dates: start: 20040101
  2. CITALOPRAM [Concomitant]
     Indication: PRODUCT USED FOR UNKNOWN INDICATION
  3. DEPAKENE [Concomitant]
     Indication: PRODUCT USED FOR UNKNOWN INDICATION

REACTIONS (9)
  - BALANCE DISORDER [None]
  - CENTRAL NERVOUS SYSTEM LESION [None]
  - MUSCULAR WEAKNESS [None]
  - COGNITIVE DISORDER [None]
  - CEREBELLAR ATROPHY [None]
  - DEPRESSED MOOD [None]
  - URINARY INCONTINENCE [None]
  - MOTOR DYSFUNCTION [None]
  - TREMOR [None]
